FAERS Safety Report 10592026 (Version 2)
Quarter: 2014Q4

REPORT INFORMATION
  Report Type: Spontaneous
  Country: US (occurrence: US)
  Receive Date: 20141119
  Receipt Date: 20141210
  Transmission Date: 20150529
  Serious: Yes (Other)
  Sender: FDA-Public Use
  Company Number: US-009507513-1411USA005208

PATIENT
  Age: 25 Year
  Sex: Female
  Weight: 50.34 kg

DRUGS (1)
  1. IMPLANON [Suspect]
     Active Substance: ETONOGESTREL
     Indication: CONTRACEPTION
     Dosage: UNK
     Route: 059
     Dates: end: 20141111

REACTIONS (3)
  - Medical device complication [Recovered/Resolved]
  - Device difficult to use [Recovered/Resolved]
  - Incorrect drug administration duration [Unknown]

NARRATIVE: CASE EVENT DATE: 20141111
